FAERS Safety Report 12121716 (Version 1)
Quarter: 2016Q1

REPORT INFORMATION
  Report Type: Spontaneous
  Country: US (occurrence: US)
  Receive Date: 20160226
  Receipt Date: 20160226
  Transmission Date: 20160526
  Serious: No
  Sender: FDA-Public Use
  Company Number: US-ALLERGAN-1209116US

PATIENT
  Age: 63 Year
  Sex: Male

DRUGS (4)
  1. DIOVAN                             /01319601/ [Concomitant]
     Indication: HYPERTENSION
     Dosage: 1 PER DAY FOR MORE THAN 5 YEARS
     Route: 048
  2. REFRESH OPTIVE SENSITIVE [Suspect]
     Active Substance: CARBOXYMETHYLCELLULOSE SODIUM\GLYCERIN
     Indication: DRY EYE
     Dosage: 2 GTT, PRN A FEW DOSES
     Route: 047
     Dates: end: 20120702
  3. NORVASC                            /00972401/ [Concomitant]
     Indication: HYPERTENSION
     Dosage: 1 PER DAY FOR MORE THAN 5 YEARS
     Route: 048
  4. LORCET [Concomitant]
     Active Substance: ACETAMINOPHEN\HYDROCODONE BITARTRATE
     Indication: HYPERTENSION
     Dosage: MORE THAN 5 YEARS

REACTIONS (5)
  - Eye irritation [Unknown]
  - Eye swelling [Not Recovered/Not Resolved]
  - Eye disorder [Recovered/Resolved]
  - Eye irritation [Not Recovered/Not Resolved]
  - Eye irritation [Recovered/Resolved]

NARRATIVE: CASE EVENT DATE: 201206
